FAERS Safety Report 26083724 (Version 1)
Quarter: 2025Q4

REPORT INFORMATION
  Report Type: Spontaneous
  Country: US (occurrence: None)
  Receive Date: 20251124
  Receipt Date: 20251124
  Transmission Date: 20260117
  Serious: Yes (Hospitalization)
  Sender: FDA-CTU
  Company Number: None

PATIENT
  Sex: Male

DRUGS (11)
  1. VYNDAMAX [Suspect]
     Active Substance: TAFAMIDIS
     Indication: Amyloidosis
     Dosage: FREQUENCY : DAILY;?
     Route: 048
     Dates: start: 20240109
  2. ALLOPURINOL [Concomitant]
     Active Substance: ALLOPURINOL
  3. ATORVASTATIN [Concomitant]
     Active Substance: ATORVASTATIN
  4. EPLERENONE [Concomitant]
     Active Substance: EPLERENONE
  5. FUROSEMIDE [Concomitant]
     Active Substance: FUROSEMIDE
  6. GABAPENTIN [Concomitant]
     Active Substance: GABAPENTIN
  7. JARDIANCE [Concomitant]
     Active Substance: EMPAGLIFLOZIN
  8. VITAMINS [Concomitant]
     Active Substance: VITAMINS
  9. POTASSIUM POW [Concomitant]
  10. SERTRALINE [Concomitant]
     Active Substance: SERTRALINE HYDROCHLORIDE
  11. TORSEMIDE [Concomitant]
     Active Substance: TORSEMIDE

REACTIONS (6)
  - Heart rate abnormal [None]
  - Dizziness postural [None]
  - Atrial fibrillation [None]
  - Fatigue [None]
  - Peripheral swelling [None]
  - Heart rate irregular [None]
